FAERS Safety Report 23070828 (Version 2)
Quarter: 2023Q4

REPORT INFORMATION
  Report Type: Spontaneous
  Country: US (occurrence: US)
  Receive Date: 20231016
  Receipt Date: 20231205
  Transmission Date: 20240110
  Serious: No
  Sender: FDA-Public Use
  Company Number: US-PFIZER INC-PV202300169494

PATIENT
  Age: 77 Year
  Sex: Female
  Weight: 97.959 kg

DRUGS (3)
  1. IBRANCE [Suspect]
     Active Substance: PALBOCICLIB
     Indication: Neoplasm malignant
     Dosage: 125 MG
     Dates: start: 20230911, end: 20231011
  2. IBRANCE [Suspect]
     Active Substance: PALBOCICLIB
     Dosage: 1 X DAY FOR 21 DAYS
     Dates: start: 20231012, end: 20231108
  3. IBRANCE [Suspect]
     Active Substance: PALBOCICLIB
     Dosage: 1 X DAY FOR 21 DAYS
     Dates: start: 20231113

REACTIONS (1)
  - White blood cell count abnormal [Recovered/Resolved]

NARRATIVE: CASE EVENT DATE: 20231012
